FAERS Safety Report 9517495 (Version 1)
Quarter: 2013Q3

REPORT INFORMATION
  Report Type: Spontaneous
  Country: JP (occurrence: JP)
  Receive Date: 20130911
  Receipt Date: 20130911
  Transmission Date: 20140515
  Serious: Yes (Other)
  Sender: FDA-Public Use
  Company Number: JP-MYLANLABS-2013S1019751

PATIENT
  Age: 76 Year
  Sex: Male

DRUGS (2)
  1. SERTRALINE [Suspect]
     Indication: ANTIDEPRESSANT THERAPY
     Dosage: TITRATED TO 50MG
     Route: 065
  2. LAMOTRIGINE [Concomitant]
     Route: 065

REACTIONS (1)
  - Status epilepticus [Recovering/Resolving]
